FAERS Safety Report 25807456 (Version 2)
Quarter: 2025Q3

REPORT INFORMATION
  Report Type: Spontaneous
  Country: US (occurrence: None)
  Receive Date: 20250916
  Receipt Date: 20250930
  Transmission Date: 20251020
  Serious: Yes (Other)
  Sender: ENDO
  Company Number: US-ENDO USA, INC.-2025-001937

PATIENT
  Age: 66 Year
  Sex: Male

DRUGS (1)
  1. XIAFLEX [Suspect]
     Active Substance: COLLAGENASE CLOSTRIDIUM HISTOLYTICUM
     Indication: Product used for unknown indication
     Route: 065

REACTIONS (3)
  - Knee arthroplasty [Unknown]
  - Limb operation [Recovered/Resolved]
  - Tendon injury [Unknown]

NARRATIVE: CASE EVENT DATE: 20230101
